FAERS Safety Report 8901577 (Version 1)
Quarter: 2012Q4

REPORT INFORMATION
  Report Type: Spontaneous
  Country: US (occurrence: None)
  Receive Date: 20121108
  Receipt Date: 20121108
  Transmission Date: 20130627
  Serious: Yes (Hospitalization)
  Sender: FDA-Public Use
  Company Number: None

PATIENT
  Age: 68 Year
  Sex: Female

DRUGS (4)
  1. PEGASYS 180MCG/0.5ML GENENTECH [Suspect]
     Indication: HEPATITIS C
     Dosage: once weekly
     Route: 058
     Dates: start: 20120908, end: 20121103
  2. RIBAVIRIN [Suspect]
     Indication: HEPATITIS C
     Dosage: 3 tabs (600 mg)/2 tabs (400mg) every morning/every
     Route: 048
     Dates: start: 20120808, end: 20121103
  3. VICTRELIS [Concomitant]
  4. PROMACTA [Concomitant]

REACTIONS (8)
  - Cough [None]
  - Dyspnoea [None]
  - Pericardial effusion [None]
  - Anaemia [None]
  - Platelet count decreased [None]
  - Fatigue [None]
  - Asthenia [None]
  - Decreased appetite [None]
